FAERS Safety Report 16878388 (Version 1)
Quarter: 2019Q3

REPORT INFORMATION
  Report Type: Spontaneous
  Country: US (occurrence: US)
  Receive Date: 20190730
  Receipt Date: 20190730
  Transmission Date: 20191005
  Serious: Yes (Hospitalization)
  Sender: FDA-Public Use
  Company Number: None

PATIENT
  Sex: Female

DRUGS (19)
  1. BACLOFEN. [Concomitant]
     Active Substance: BACLOFEN
  2. OXYBUTYNIN. [Concomitant]
     Active Substance: OXYBUTYNIN CHLORIDE
  3. GABAPENTIN. [Concomitant]
     Active Substance: GABAPENTIN
  4. LOSARTAN. [Concomitant]
     Active Substance: LOSARTAN
  5. METHYLPHENID [Concomitant]
     Active Substance: METHYLPHENIDATE
  6. CIMZIA [Suspect]
     Active Substance: CERTOLIZUMAB PEGOL
     Route: 058
     Dates: start: 20190624
  7. HYDROCHLOR [Concomitant]
  8. TELMISARTAN. [Concomitant]
     Active Substance: TELMISARTAN
  9. BYSTOLIC [Concomitant]
     Active Substance: NEBIVOLOL HYDROCHLORIDE
  10. ESCITALOPRAM [Concomitant]
     Active Substance: ESCITALOPRAM OXALATE
  11. BYSTOLIC [Concomitant]
     Active Substance: NEBIVOLOL HYDROCHLORIDE
  12. CLOPIDOGREL [Concomitant]
     Active Substance: CLOPIDOGREL BISULFATE
  13. GABAPENTIN. [Concomitant]
     Active Substance: GABAPENTIN
  14. ROSUVASTATIN. [Concomitant]
     Active Substance: ROSUVASTATIN
  15. CLONAZEPAM. [Concomitant]
     Active Substance: CLONAZEPAM
  16. ESCITALOPRAM [Concomitant]
     Active Substance: ESCITALOPRAM OXALATE
  17. BACLOFEN. [Concomitant]
     Active Substance: BACLOFEN
  18. CLONAZEPAM. [Concomitant]
     Active Substance: CLONAZEPAM
  19. CLOPIDOGREL [Suspect]
     Active Substance: CLOPIDOGREL BISULFATE

REACTIONS (3)
  - Blood pressure abnormal [None]
  - Product dose omission [None]
  - Condition aggravated [None]
